FAERS Safety Report 14355505 (Version 1)
Quarter: 2018Q1

REPORT INFORMATION
  Report Type: Spontaneous
  Country: US (occurrence: US)
  Receive Date: 20180105
  Receipt Date: 20180105
  Transmission Date: 20180509
  Serious: No
  Sender: FDA-Public Use
  Company Number: US-BIOGEN-2018BI00505322

PATIENT
  Sex: Female

DRUGS (1)
  1. TYSABRI [Suspect]
     Active Substance: NATALIZUMAB
     Indication: MULTIPLE SCLEROSIS
     Route: 065
     Dates: start: 20161108, end: 20170911

REACTIONS (4)
  - General physical health deterioration [Recovered/Resolved]
  - Gait inability [Recovered/Resolved]
  - Asthenia [Unknown]
  - Muscular weakness [Unknown]
